FAERS Safety Report 9262368 (Version 1)
Quarter: 2013Q2

REPORT INFORMATION
  Report Type: Spontaneous
  Country: SE (occurrence: SE)
  Receive Date: 20130430
  Receipt Date: 20130430
  Transmission Date: 20140414
  Serious: Yes (Hospitalization)
  Sender: FDA-Public Use
  Company Number: SE-009507513-1304SWE015011

PATIENT
  Age: 31 Year
  Sex: Female

DRUGS (2)
  1. IMPLANON [Suspect]
     Dosage: UNK
     Route: 059
     Dates: start: 20051003
  2. IMPLANON [Suspect]
     Dosage: UNK
     Route: 059
     Dates: start: 2008, end: 2011

REACTIONS (2)
  - Anovulatory cycle [Unknown]
  - Medical device complication [Unknown]
